FAERS Safety Report 8059117-5 (Version None)
Quarter: 2012Q1

REPORT INFORMATION
  Report Type: 
  Country: None (occurrence: None)
  Receive Date: 20120120
  Receipt Date: 20120117
  Transmission Date: 20120608
  Serious: Yes (Hospitalization, Other)
  Sender: FDA-Public Use
  Company Number: US-PFIZER INC-2010081112

PATIENT
  Sex: Female

DRUGS (5)
  1. CHANTIX [Suspect]
     Indication: SMOKING CESSATION THERAPY
     Dosage: 1 MG, UNK
     Dates: start: 20071001, end: 20071201
  2. NEXIUM [Concomitant]
     Indication: GASTROOESOPHAGEAL REFLUX DISEASE
     Dosage: UNK
     Dates: start: 20030101, end: 20100101
  3. PREMARIN [Concomitant]
     Indication: HORMONE THERAPY
     Dosage: UNK
     Dates: start: 19860101
  4. SYNTHROID [Concomitant]
     Indication: THYROID DISORDER
     Dosage: UNK
     Dates: start: 20070101
  5. MOBIC [Concomitant]
     Indication: ARTHRITIS
     Dosage: UNK
     Dates: start: 20030101, end: 20090101

REACTIONS (8)
  - ATTENTION DEFICIT/HYPERACTIVITY DISORDER [None]
  - AGGRESSION [None]
  - ABNORMAL BEHAVIOUR [None]
  - ANXIETY [None]
  - SUICIDAL IDEATION [None]
  - SCHIZOPHRENIA [None]
  - DEPRESSION [None]
  - BIPOLAR DISORDER [None]
